FAERS Safety Report 18566047 (Version 1)
Quarter: 2020Q4

REPORT INFORMATION
  Report Type: Spontaneous
  Country: US (occurrence: US)
  Receive Date: 20201201
  Receipt Date: 20201201
  Transmission Date: 20210114
  Serious: Yes (Other)
  Sender: FDA-Public Use
  Company Number: US-ASTRAZENECA-2020SF57629

PATIENT
  Sex: Female

DRUGS (1)
  1. TAGRISSO [Suspect]
     Active Substance: OSIMERTINIB
     Route: 048

REACTIONS (7)
  - Nail disorder [Unknown]
  - Nasopharyngitis [Unknown]
  - Lung carcinoma cell type unspecified stage IV [Unknown]
  - Diarrhoea [Unknown]
  - Hypoaesthesia [Unknown]
  - Metastases to bone [Unknown]
  - Metastases to central nervous system [Unknown]
